FAERS Safety Report 18945549 (Version 1)
Quarter: 2021Q1

REPORT INFORMATION
  Report Type: Spontaneous
  Country: CH (occurrence: CH)
  Receive Date: 20210226
  Receipt Date: 20210226
  Transmission Date: 20210420
  Serious: Yes (Hospitalization)
  Sender: FDA-Public Use
  Company Number: NVSC2021CH042670

PATIENT
  Sex: Male

DRUGS (11)
  1. GABAPENTIN PFIZER [Concomitant]
     Active Substance: GABAPENTIN
     Indication: PRODUCT USED FOR UNKNOWN INDICATION
     Dosage: 600 MG, Q8H (GABAPENTIN TBL. 600 MG (GABAPENTIN) 1?1?1?0)
     Route: 048
  2. ADENURIC [Concomitant]
     Active Substance: FEBUXOSTAT
     Indication: PRODUCT USED FOR UNKNOWN INDICATION
     Dosage: 40 MG, QD (ADENURIC TBL. 80 MG (FEBUXOSTAT) ? ?0? 0?0)
     Route: 048
  3. OMEPRAZOLE AND SODIUM BICARBONATE [Concomitant]
     Active Substance: OMEPRAZOLE\SODIUM BICARBONATE
     Indication: PRODUCT USED FOR UNKNOWN INDICATION
     Dosage: 20 MG, PRN (OMEPRAZOLE TABLETS 20 MG (OMEPRAZOLE) AS NEEDED)
     Route: 065
  4. XARELTO [Concomitant]
     Active Substance: RIVAROXABAN
     Indication: PRODUCT USED FOR UNKNOWN INDICATION
     Dosage: 20 MG, QD (1?0?0?0)
     Route: 048
  5. ASPIRIN CARDIO [Concomitant]
     Active Substance: ASPIRIN
     Indication: PRODUCT USED FOR UNKNOWN INDICATION
     Dosage: 100 MG, QD (1?0?0?0)
     Route: 048
     Dates: end: 20210127
  6. TRAMAL [Concomitant]
     Active Substance: TRAMADOL
     Indication: PRODUCT USED FOR UNKNOWN INDICATION
     Dosage: 50 MG, Q8H (1?1?1?0)
     Route: 065
  7. ALDACTONE [Suspect]
     Active Substance: SPIRONOLACTONE
     Indication: CARDIAC FAILURE
     Dosage: 25 MG, QD (1?0?0?0 UP TO/INCLUDING 20 JAN 2021)
     Route: 048
     Dates: end: 20210120
  8. TOREM [Concomitant]
     Active Substance: TORSEMIDE
     Indication: PRODUCT USED FOR UNKNOWN INDICATION
     Dosage: 5 MG, QD (1?0?0?0)
     Route: 048
  9. METOPROLOL AXAPHARM [Concomitant]
     Indication: PRODUCT USED FOR UNKNOWN INDICATION
     Dosage: 100 MG, Q12H (1?0?1?0)
     Route: 048
  10. ENTRESTO [Suspect]
     Active Substance: SACUBITRIL\VALSARTAN
     Indication: CARDIAC FAILURE
     Dosage: 200 MG (1?0?1?0 UP TO/INCLUDING 24 JAN 2021)
     Route: 048
     Dates: end: 20210124
  11. SIMVASTATIN PFIZER [Concomitant]
     Active Substance: SIMVASTATIN
     Indication: PRODUCT USED FOR UNKNOWN INDICATION
     Dosage: 20 MG, QD (0?0?1?0)
     Route: 048

REACTIONS (2)
  - Metabolic acidosis [Recovered/Resolved]
  - Hyperkalaemia [Recovered/Resolved]
